FAERS Safety Report 9598850 (Version 1)
Quarter: 2013Q4

REPORT INFORMATION
  Report Type: Spontaneous
  Country: US (occurrence: US)
  Receive Date: 20131004
  Receipt Date: 20131004
  Transmission Date: 20140711
  Serious: No
  Sender: FDA-Public Use
  Company Number: US-AMGEN-USASP2013026379

PATIENT
  Age: 53 Year
  Sex: Female

DRUGS (15)
  1. ENBREL [Suspect]
     Indication: PRODUCT USED FOR UNKNOWN INDICATION
     Dosage: 50 MG, QWK
     Route: 058
  2. COZAAR [Concomitant]
     Dosage: 25 MG, UNK
  3. HYDROCHLOROTH [Concomitant]
     Dosage: 12.5 MG, UNK
  4. CRESTOR [Concomitant]
     Dosage: 40 MG, UNK
  5. METOPROLOL [Concomitant]
     Dosage: 25 MG, UNK
  6. OXYCODONE [Concomitant]
     Dosage: 5 MG, UNK
  7. FORTEO [Concomitant]
     Dosage: 750/3 ML
  8. XANAX [Concomitant]
     Dosage: 0.5 MG, UNK
  9. CO Q 10                            /00517201/ [Concomitant]
     Dosage: 100 MG, UNK
  10. FISH OIL [Concomitant]
     Dosage: UNK
  11. MULTIVITAMIN                       /00097801/ [Concomitant]
     Dosage: UNK
  12. CALCIUM [Concomitant]
     Dosage: 500 MG, UNK
  13. VITAMIN D3 [Concomitant]
     Dosage: 10000 UNIT, UNK
  14. FOLIC ACID [Concomitant]
     Dosage: UNK
  15. NEURONTIN [Concomitant]
     Dosage: 100 MG, UNK

REACTIONS (1)
  - Injection site pain [Unknown]
